FAERS Safety Report 15648384 (Version 3)
Quarter: 2018Q4

REPORT INFORMATION
  Report Type: Spontaneous
  Country: US (occurrence: US)
  Receive Date: 20181122
  Receipt Date: 20181207
  Transmission Date: 20190205
  Serious: No
  Sender: FDA-Public Use
  Company Number: US-PFIZER INC-2018472317

PATIENT
  Sex: Male

DRUGS (3)
  1. FLECTOR [Suspect]
     Active Substance: DICLOFENAC EPOLAMINE
     Dosage: UNK, 2X/DAY AS DIRECTED (EVERY 12 HOURS)
  2. FLECTOR [Suspect]
     Active Substance: DICLOFENAC EPOLAMINE
     Indication: BACK PAIN
     Dosage: UNK , 1X/DAY (ONE PATCH IN ONE DAY)
  3. FLECTOR [Suspect]
     Active Substance: DICLOFENAC EPOLAMINE
     Dosage: UNK, 1X/DAY (USED 2 PATCHES PER DAY )

REACTIONS (2)
  - Abdominal pain upper [Unknown]
  - Back disorder [Unknown]
